FAERS Safety Report 5168851-6 (Version None)
Quarter: 2006Q4

REPORT INFORMATION
  Report Type: 
  Country: None (occurrence: None)
  Receive Date: 20061211
  Receipt Date: 20061129
  Transmission Date: 20070319
  Serious: Yes (Life-Threatening, Hospitalization)
  Sender: FDA-Public Use
  Company Number: FR-JNJFOC-20050701855

PATIENT
  Age: 70 Year
  Sex: Male
  Weight: 84 kg

DRUGS (3)
  1. REMICADE [Suspect]
     Indication: ANKYLOSING SPONDYLITIS
     Route: 042
  2. CORTANCYL [Concomitant]
     Route: 048
  3. CYTOTEC [Concomitant]
     Route: 048

REACTIONS (3)
  - ACUTE LEUKAEMIA [None]
  - LEUKOPENIA [None]
  - NEUTROPENIA [None]
